FAERS Safety Report 9938127 (Version 1)
Quarter: 2014Q1

REPORT INFORMATION
  Report Type: Report from Study
  Country: DE (occurrence: DE)
  Receive Date: 20140303
  Receipt Date: 20140303
  Transmission Date: 20141002
  Serious: Yes (Hospitalization)
  Sender: FDA-Public Use
  Company Number: DE-ROCHE-1351734

PATIENT
  Age: 85 Year
  Sex: Female

DRUGS (3)
  1. RITUXIMAB [Suspect]
     Indication: B-CELL LYMPHOMA
     Dosage: 375MG/ML=690MG?LAST DOSE PRIOR TO ADVERSE EVENT: 19/DEC/2013
     Route: 042
     Dates: start: 20130705
  2. BENDAMUSTINE [Suspect]
     Indication: B-CELL LYMPHOMA
     Dosage: LAST DOSE PRIOR TO SAE: 28/NOV/2013
     Route: 065
     Dates: start: 20130708
  3. L-THYROXIN [Concomitant]

REACTIONS (1)
  - Circulatory collapse [Not Recovered/Not Resolved]
